FAERS Safety Report 6361992-7 (Version None)
Quarter: 2009Q3

REPORT INFORMATION
  Report Type: 
  Country: None (occurrence: None)
  Receive Date: 20090918
  Receipt Date: 20090917
  Transmission Date: 20100115
  Serious: Yes (Death, Hospitalization)
  Sender: FDA-Public Use
  Company Number: JP-EISAI INC.-E2020-05225-SPO-JP

PATIENT
  Age: 91 Year

DRUGS (7)
  1. ARICEPT [Suspect]
     Indication: DEMENTIA ALZHEIMER'S TYPE
     Route: 048
     Dates: start: 20090914, end: 20090916
  2. LASIX [Concomitant]
     Indication: CARDIAC FAILURE
     Route: 048
     Dates: start: 20050101, end: 20090916
  3. ALDACTONE [Concomitant]
     Indication: CARDIAC FAILURE
     Route: 048
     Dates: start: 20050101, end: 20090916
  4. DIOVAN [Concomitant]
     Indication: HYPERTENSION
     Route: 048
     Dates: start: 20050101, end: 20090916
  5. AMOBAN [Concomitant]
     Indication: DELIRIUM
     Route: 048
     Dates: start: 20090914, end: 20090916
  6. GRAMALIL [Concomitant]
     Indication: DELIRIUM
     Route: 048
     Dates: start: 20090914, end: 20090916
  7. RISPERDAL [Concomitant]
     Indication: DELIRIUM
     Route: 048
     Dates: start: 20090914, end: 20090916

REACTIONS (1)
  - CARDIO-RESPIRATORY ARREST [None]
